FAERS Safety Report 21991224 (Version 1)
Quarter: 2023Q1

REPORT INFORMATION
  Report Type: Spontaneous
  Country: BR (occurrence: BR)
  Receive Date: 20230214
  Receipt Date: 20230214
  Transmission Date: 20230417
  Serious: Yes (Death, Other)
  Sender: FDA-Public Use
  Company Number: BR-SA-2023SA046900

PATIENT
  Sex: Female

DRUGS (2)
  1. ENOXAPARIN SODIUM [Suspect]
     Active Substance: ENOXAPARIN SODIUM
     Indication: Congenital hypercoagulation
     Dosage: 70 MG
  2. ASPIRIN [Suspect]
     Active Substance: ASPIRIN
     Indication: Pre-eclampsia

REACTIONS (2)
  - Death neonatal [Fatal]
  - Exposure during pregnancy [Unknown]
